FAERS Safety Report 25764736 (Version 1)
Quarter: 2025Q3

REPORT INFORMATION
  Report Type: Spontaneous
  Country: US (occurrence: US)
  Receive Date: 20250905
  Receipt Date: 20250905
  Transmission Date: 20251020
  Serious: No
  Sender: ROCHE
  Company Number: US-ROCHE-10000373635

PATIENT
  Age: 56 Year
  Sex: Female
  Weight: 121.11 kg

DRUGS (21)
  1. XOLAIR [Suspect]
     Active Substance: OMALIZUMAB
     Indication: Asthma
     Route: 058
     Dates: end: 2024
  2. XOLAIR [Suspect]
     Active Substance: OMALIZUMAB
     Indication: Hypersensitivity
     Route: 058
     Dates: start: 2024
  3. MONTELUKAST [Concomitant]
     Active Substance: MONTELUKAST
     Route: 048
  4. TRELEGY ELLIPTA [Concomitant]
     Active Substance: FLUTICASONE FUROATE\UMECLIDINIUM BROMIDE\VILANTEROL TRIFENATATE
  5. ALBUTEROL SULFATE [Concomitant]
     Active Substance: ALBUTEROL SULFATE
  6. GABAPENTIN [Concomitant]
     Active Substance: GABAPENTIN
  7. DULOXETINE [Concomitant]
     Active Substance: DULOXETINE
  8. HYDROXYZINE HYDROCHLORIDE [Concomitant]
     Active Substance: HYDROXYZINE HYDROCHLORIDE
  9. TIZANIDINE [Concomitant]
     Active Substance: TIZANIDINE
  10. ATORVASTATIN [Concomitant]
     Active Substance: ATORVASTATIN
  11. TOPIRAMATE [Concomitant]
     Active Substance: TOPIRAMATE
  12. BUTRANS [Concomitant]
     Active Substance: BUPRENORPHINE
     Indication: Sciatica
  13. VEOZAH [Concomitant]
     Active Substance: FEZOLINETANT
  14. BUDESONIDE [Concomitant]
     Active Substance: BUDESONIDE
  15. OXYCODONE [Concomitant]
     Active Substance: OXYCODONE
  16. ALBUTEROL [Concomitant]
     Active Substance: ALBUTEROL
     Indication: Asthma
  17. IPRATROPIUM BROMIDE AND ALBUTEROL SULFATE [Concomitant]
     Active Substance: ALBUTEROL SULFATE\IPRATROPIUM BROMIDE
     Indication: Asthma
  18. PREDNISONE [Concomitant]
     Active Substance: PREDNISONE
     Indication: Asthma
  19. BUTALBITAL, ACETAMINOPHEN, AND CAFFEINE [Concomitant]
     Active Substance: ACETAMINOPHEN\BUTALBITAL\CAFFEINE
     Indication: Headache
  20. EXCEDRIN EXTRA STRENGTH [Concomitant]
     Active Substance: ACETAMINOPHEN\ASPIRIN\CAFFEINE
     Indication: Headache
  21. EPIPEN [Concomitant]
     Active Substance: EPINEPHRINE

REACTIONS (3)
  - Accidental exposure to product [Unknown]
  - Product dose omission issue [Unknown]
  - No adverse event [Unknown]

NARRATIVE: CASE EVENT DATE: 20250822
